FAERS Safety Report 17277379 (Version 3)
Quarter: 2020Q1

REPORT INFORMATION
  Report Type: Spontaneous
  Country: JP (occurrence: JP)
  Receive Date: 20200116
  Receipt Date: 20200321
  Transmission Date: 20200409
  Serious: Yes (Death)
  Sender: FDA-Public Use
  Company Number: JP-ROCHE-2524351

PATIENT
  Age: 12 Year
  Sex: Male

DRUGS (3)
  1. MEYLON [Concomitant]
     Active Substance: SODIUM BICARBONATE
  2. XOFLUZA [Suspect]
     Active Substance: BALOXAVIR MARBOXIL
     Indication: INFLUENZA
     Route: 048
     Dates: start: 20200107, end: 20200107
  3. BOSMIN [EPINEPHRINE] [Concomitant]

REACTIONS (2)
  - Cardio-respiratory arrest [Fatal]
  - Cardiac failure [Fatal]

NARRATIVE: CASE EVENT DATE: 20200108
